FAERS Safety Report 8080234-8 (Version None)
Quarter: 2012Q1

REPORT INFORMATION
  Report Type: 
  Country: None (occurrence: None)
  Receive Date: 20120127
  Receipt Date: 20110221
  Transmission Date: 20120608
  Serious: No
  Sender: FDA-Public Use
  Company Number: US-ABBOTT-11P-163-0707769-00

PATIENT
  Sex: Female
  Weight: 65.376 kg

DRUGS (5)
  1. FISH OIL [Concomitant]
     Indication: PRODUCT USED FOR UNKNOWN INDICATION
  2. HUMIRA [Suspect]
     Dosage: 1ST LOADING DOSE
     Route: 058
     Dates: start: 20110101, end: 20110101
  3. HUMIRA [Suspect]
     Indication: PSORIASIS
     Route: 058
     Dates: start: 20110101
  4. EVENING PRIMROSE [Concomitant]
     Indication: PRODUCT USED FOR UNKNOWN INDICATION
  5. FLAX SEED OIL [Concomitant]
     Indication: PRODUCT USED FOR UNKNOWN INDICATION

REACTIONS (6)
  - FATIGUE [None]
  - RESPIRATORY TRACT CONGESTION [None]
  - INJECTION SITE PAIN [None]
  - VAGINAL DISCHARGE [None]
  - FUNGAL INFECTION [None]
  - NASOPHARYNGITIS [None]
